FAERS Safety Report 9927258 (Version 1)
Quarter: 2014Q1

REPORT INFORMATION
  Report Type: Spontaneous
  Country: US (occurrence: US)
  Receive Date: 20140226
  Receipt Date: 20140226
  Transmission Date: 20141002
  Serious: Yes (Hospitalization)
  Sender: FDA-Public Use
  Company Number: US-GILEAD-2014-0095237

PATIENT
  Sex: Female

DRUGS (1)
  1. LETAIRIS [Suspect]
     Indication: PRODUCT USED FOR UNKNOWN INDICATION
     Dosage: 10 MG, UNK
     Route: 048
     Dates: start: 20110616

REACTIONS (8)
  - Cyst [Unknown]
  - Bacterial vaginosis [Unknown]
  - Pelvic pain [Unknown]
  - Drug abuse [Unknown]
  - Anxiety [Unknown]
  - Abdominal pain lower [Unknown]
  - Constipation [Unknown]
  - Abdominal pain upper [Unknown]
